FAERS Safety Report 8488534-4 (Version None)
Quarter: 2012Q3

REPORT INFORMATION
  Report Type: 
  Country: None (occurrence: None)
  Receive Date: 20120705
  Receipt Date: 20120629
  Transmission Date: 20120928
  Serious: Yes (Other)
  Sender: FDA-Public Use
  Company Number: IT-PFIZER INC-2012157859

PATIENT
  Age: 31 Year
  Sex: Male

DRUGS (3)
  1. XANAX [Suspect]
     Indication: DEPRESSION
     Dosage: 1 DF, 1X/DAY
     Route: 048
     Dates: start: 20120501, end: 20120612
  2. LORAZEPAM [Suspect]
     Indication: DEPRESSION
     Dosage: 1 DF, 1X/DAY
     Route: 048
     Dates: start: 20120501, end: 20120612
  3. DIAZEPAM [Suspect]
     Indication: DEPRESSION
     Dosage: 1 DF, 1X/DAY
     Route: 048
     Dates: start: 20120501, end: 20120612

REACTIONS (3)
  - VERTIGO [None]
  - HEAD INJURY [None]
  - SYNCOPE [None]
